FAERS Safety Report 5313432-4 (Version None)
Quarter: 2007Q1

REPORT INFORMATION
  Report Type: 
  Country: None (occurrence: None)
  Receive Date: 20070130
  Receipt Date: 20060804
  Transmission Date: 20070707
  Serious: Yes (Hospitalization)
  Sender: FDA-Public Use
  Company Number: 146901USA

PATIENT
  Age: 48 Year
  Sex: Female

DRUGS (5)
  1. COPAXONE [Suspect]
     Indication: MULTIPLE SCLEROSIS
     Dosage: (20 MG,ONCE A DAY),SUBCUTANEOUS
     Route: 058
     Dates: start: 20030901, end: 20031101
  2. THYROID TAB [Concomitant]
  3. ALENDRONATE SODIUM [Concomitant]
  4. GABAPENTIN [Concomitant]
  5. DIABETIC DRUG [Concomitant]

REACTIONS (7)
  - ASTHENIA [None]
  - CHILLS [None]
  - HOT FLUSH [None]
  - NAUSEA [None]
  - SWOLLEN TONGUE [None]
  - THROAT TIGHTNESS [None]
  - VOMITING [None]
